FAERS Safety Report 5995015-6 (Version None)
Quarter: 2008Q4

REPORT INFORMATION
  Report Type: 
  Country: None (occurrence: None)
  Receive Date: 20081209
  Receipt Date: 20080815
  Transmission Date: 20090506
  Serious: No
  Sender: FDA-Public Use
  Company Number: 002#2#2008-00643

PATIENT
  Age: 57 Year
  Sex: Male
  Weight: 74.8435 kg

DRUGS (5)
  1. NEUPRO [Suspect]
     Indication: PARKINSON'S DISEASE
     Dosage: 4MG/24H,1 IN 2 D,TRANSDERMAL ; 6MG/24H,1 IN 2 D,TRANSDERMAL
     Route: 062
     Dates: start: 20070101
  2. NEUPRO [Suspect]
     Indication: PARKINSON'S DISEASE
     Dosage: 4MG/24H,1 IN 2 D,TRANSDERMAL ; 6MG/24H,1 IN 2 D,TRANSDERMAL
     Route: 062
     Dates: start: 20070101
  3. STALEVO 100 [Suspect]
     Dosage: 150MG,3 IN 3 D,ORAL
     Route: 048
     Dates: start: 20070101
  4. AMANTADINE HCL [Suspect]
     Dosage: 100MG,1 IN 1 D,ORAL
     Route: 048
     Dates: start: 20070101
  5. PROVIGIL [Suspect]
     Dosage: 200MG,2 IN 2 D,ORAL
     Route: 048

REACTIONS (2)
  - DRUG INTERACTION [None]
  - DYSKINESIA [None]
